FAERS Safety Report 7212312-7 (Version None)
Quarter: 2011Q1

REPORT INFORMATION
  Report Type: 
  Country: None (occurrence: None)
  Receive Date: 20110106
  Receipt Date: 20110103
  Transmission Date: 20110831
  Serious: Yes (Death)
  Sender: FDA-Public Use
  Company Number: PHHY2011SI00660

PATIENT
  Sex: Male

DRUGS (1)
  1. LESCOL [Suspect]
     Dosage: UNK
     Dates: start: 20071223

REACTIONS (1)
  - DEATH [None]
